FAERS Safety Report 25769345 (Version 1)
Quarter: 2025Q3

REPORT INFORMATION
  Report Type: Spontaneous
  Country: US (occurrence: US)
  Receive Date: 20250906
  Receipt Date: 20250906
  Transmission Date: 20251021
  Serious: No
  Sender: GLAND PHARMA LTD
  Company Number: US-GLANDPHARMA-US-2025GLNSPO01724

PATIENT

DRUGS (2)
  1. ROCURONIUM BROMIDE [Suspect]
     Active Substance: ROCURONIUM BROMIDE
     Indication: Paralysis
     Route: 065
  2. VECURONIUM [Concomitant]
     Active Substance: VECURONIUM BROMIDE
     Route: 065

REACTIONS (1)
  - Therapy non-responder [Unknown]
